FAERS Safety Report 10860913 (Version 2)
Quarter: 2015Q2

REPORT INFORMATION
  Report Type: Spontaneous
  Country: US (occurrence: US)
  Receive Date: 20150224
  Receipt Date: 20150403
  Transmission Date: 20150821
  Serious: Yes (Hospitalization)
  Sender: FDA-Public Use
  Company Number: US-DRREDDYS-USA/USA/15/0046201

PATIENT
  Age: 17 Year
  Sex: Male
  Weight: 30 kg

DRUGS (9)
  1. DAPSONE. [Suspect]
     Active Substance: DAPSONE
     Indication: ACNE CYSTIC
  2. AMOXICILLIN. [Suspect]
     Active Substance: AMOXICILLIN
     Indication: ACNE CYSTIC
     Route: 048
  3. DOXYCYCLINE. [Suspect]
     Active Substance: DOXYCYCLINE
     Indication: ACNE CYSTIC
     Route: 065
  4. TRETINOIN. [Suspect]
     Active Substance: TRETINOIN
     Indication: ACNE CYSTIC
     Route: 061
  5. ISOTRETINOIN NOT OTHERWISE SPECIFIED [Suspect]
     Active Substance: ISOTRETINOIN
     Indication: ACNE CYSTIC
     Route: 048
  6. CLINDAMYCIN [Suspect]
     Active Substance: CLINDAMYCIN\CLINDAMYCIN PHOSPHATE
     Indication: ACNE CYSTIC
  7. RIFAMPIN. [Suspect]
     Active Substance: RIFAMPIN
     Indication: ACNE CYSTIC
     Route: 065
  8. AMOXICILLIN AND CLAVULANATE POTASSIUM [Suspect]
     Active Substance: AMOXICILLIN\CLAVULANATE POTASSIUM
     Indication: ACNE CYSTIC
     Route: 065
  9. INTRALESIONAL TRIAMCINOLONE ACETONIDE [Suspect]
     Active Substance: TRIAMCINOLONE ACETONIDE
     Indication: ACNE CYSTIC
     Dosage: 5 TO 10 MG/ML

REACTIONS (5)
  - Condition aggravated [Unknown]
  - Product quality issue [Unknown]
  - Status epilepticus [Unknown]
  - Cardiac arrest [Unknown]
  - Drug ineffective [Unknown]
